FAERS Safety Report 16509062 (Version 1)
Quarter: 2019Q3

REPORT INFORMATION
  Report Type: Spontaneous
  Country: ES (occurrence: ES)
  Receive Date: 20190702
  Receipt Date: 20190702
  Transmission Date: 20191004
  Serious: Yes (Hospitalization)
  Sender: FDA-Public Use
  Company Number: ES-ACCORD-136126

PATIENT
  Age: 61 Year
  Sex: Male
  Weight: 76 kg

DRUGS (3)
  1. TOCILIZUMAB. [Interacting]
     Active Substance: TOCILIZUMAB
     Indication: EOSINOPHILIC FASCIITIS
     Route: 042
     Dates: start: 20181212, end: 20190101
  2. METHOTREXATE. [Suspect]
     Active Substance: METHOTREXATE
     Indication: EOSINOPHILIC FASCIITIS
     Route: 048
     Dates: start: 20180427, end: 20190101
  3. PREDNISONE. [Interacting]
     Active Substance: PREDNISONE
     Indication: EOSINOPHILIC FASCIITIS
     Route: 048
     Dates: start: 20181211

REACTIONS (3)
  - Cellulitis [Recovered/Resolved]
  - Off label use [Unknown]
  - Drug interaction [Unknown]

NARRATIVE: CASE EVENT DATE: 20190101
